FAERS Safety Report 12940031 (Version 1)
Quarter: 2016Q4

REPORT INFORMATION
  Report Type: Report from Study
  Country: CA (occurrence: CA)
  Receive Date: 20161115
  Receipt Date: 20161115
  Transmission Date: 20170207
  Serious: Yes (Other)
  Sender: FDA-Public Use
  Company Number: CA-AMGEN-CANSL2016157772

PATIENT
  Sex: Female

DRUGS (1)
  1. ENBREL [Suspect]
     Active Substance: ETANERCEPT
     Indication: PRODUCT USED FOR UNKNOWN INDICATION
     Dosage: 50 MG, UNK
     Route: 065
     Dates: start: 20160203, end: 2016

REACTIONS (4)
  - Neuralgia [Unknown]
  - Alopecia [Unknown]
  - Tinnitus [Unknown]
  - Headache [Unknown]

NARRATIVE: CASE EVENT DATE: 2016
